FAERS Safety Report 4520380-6 (Version None)
Quarter: 2004Q4

REPORT INFORMATION
  Report Type: 
  Country: None (occurrence: None)
  Receive Date: 20041206
  Receipt Date: 20041206
  Transmission Date: 20050328
  Serious: Yes (Other)
  Sender: FDA-Public Use
  Company Number: None

PATIENT
  Age: 50 Year
  Sex: Female
  Weight: 72.5755 kg

DRUGS (2)
  1. SYNTHROID [Suspect]
     Dosage: 125MCG  DAILY ORAL
     Route: 048
     Dates: start: 20041002, end: 20041201
  2. SYNTHROID [Suspect]
     Dosage: 112MCG DAILY ORAL
     Route: 048
     Dates: start: 20040913, end: 20041001

REACTIONS (5)
  - BURNING SENSATION [None]
  - ERYTHEMA [None]
  - PRURITUS [None]
  - RASH ERYTHEMATOUS [None]
  - SKIN DESQUAMATION [None]
